FAERS Safety Report 23255026 (Version 1)
Quarter: 2023Q4

REPORT INFORMATION
  Report Type: Spontaneous
  Country: US (occurrence: US)
  Receive Date: 20231203
  Receipt Date: 20231203
  Transmission Date: 20240110
  Serious: No
  Sender: FDA-Public Use
  Company Number: US-AMNEAL PHARMACEUTICALS-2023-AMRX-00404

PATIENT
  Age: 27 Year
  Sex: Male

DRUGS (1)
  1. ISOTRETINOIN [Suspect]
     Active Substance: ISOTRETINOIN
     Indication: Product used for unknown indication
     Dosage: 60 MG CAPSULE
     Route: 065
     Dates: start: 20221020, end: 20221208

REACTIONS (13)
  - Musculoskeletal discomfort [Unknown]
  - Sexual dysfunction [Unknown]
  - Loss of libido [Unknown]
  - Erectile dysfunction [Unknown]
  - Anorgasmia [Unknown]
  - Brain fog [Unknown]
  - Depression [Unknown]
  - Frustration tolerance decreased [Unknown]
  - Anxiety [None]
  - Asthenia [Unknown]
  - Impaired work ability [Unknown]
  - Headache [Unknown]
  - Back pain [Unknown]

NARRATIVE: CASE EVENT DATE: 20221101
